FAERS Safety Report 6834054-X (Version None)
Quarter: 2010Q3

REPORT INFORMATION
  Report Type: 
  Country: None (occurrence: None)
  Receive Date: 20100712
  Receipt Date: 20070409
  Transmission Date: 20110219
  Serious: No
  Sender: FDA-Public Use
  Company Number: US-PFIZER INC-2007029157

PATIENT
  Sex: Male
  Weight: 99.79 kg

DRUGS (5)
  1. CHANTIX [Suspect]
     Indication: SMOKING CESSATION THERAPY
     Dates: start: 20070401
  2. NORVASC [Concomitant]
  3. COZAAR [Concomitant]
  4. LANOXIN [Concomitant]
  5. COREG [Concomitant]

REACTIONS (1)
  - ABDOMINAL PAIN [None]
